FAERS Safety Report 17803829 (Version 1)
Quarter: 2020Q2

REPORT INFORMATION
  Report Type: Spontaneous
  Country: CN (occurrence: CN)
  Receive Date: 20200519
  Receipt Date: 20200519
  Transmission Date: 20200714
  Serious: Yes (Hospitalization)
  Sender: FDA-Public Use
  Company Number: CN-BAXTER-2020BAX010243

PATIENT
  Age: 28 Year
  Sex: Female
  Weight: 45.5 kg

DRUGS (10)
  1. ENDOXAN [Suspect]
     Active Substance: CYCLOPHOSPHAMIDE
     Indication: PLASMA CELL MYELOMA
     Dosage: VAC CHEMOTHERAPY, ENDOXAN 0.69 MG+ GS 500 ML, DAY 2
     Route: 041
     Dates: start: 20200414, end: 20200414
  2. 5% GLUCOSE  INJECTION [Suspect]
     Active Substance: DEXTROSE
     Dosage: VAC CHEMOTHERAPY, ENDOXAN 0.69 MG+ GS 500 ML, DAY 2
     Route: 041
     Dates: start: 20200414, end: 20200414
  3. DOXORUBICIN HYDROCHLORIDE LIPOSOME [Suspect]
     Active Substance: DOXORUBICIN HYDROCHLORIDE
     Indication: EWING^S SARCOMA
     Dosage: VAC CHEMOTHERAPY, DOXORUBICIN HYDROCHLORIDE LIPOSOMAL 40 MG+ GS 500 ML, DAY 1 TO DAY 2
     Route: 041
     Dates: start: 20200413, end: 20200414
  4. 5% GLUCOSE  INJECTION [Suspect]
     Active Substance: DEXTROSE
     Indication: MEDICATION DILUTION
     Dosage: VAC CHEMOTHERAPY, ENDOXAN 1 GRAM+ GS 500 ML, DAY 1
     Route: 041
     Dates: start: 20200413, end: 20200413
  5. 5% GLUCOSE  INJECTION [Suspect]
     Active Substance: DEXTROSE
     Dosage: VAC CHEMOTHERAPY, VINDESINE SULFATE 4 MG+ GS 500 ML, DAY 1
     Route: 041
     Dates: start: 20200413, end: 20200413
  6. VINDESINE SULFATE [Suspect]
     Active Substance: VINDESINE SULFATE
     Indication: EWING^S SARCOMA
     Dosage: VAC CHEMOTHERAPY, VINDESINE SULFATE 4 MG+ GS 500 ML, DAY 1
     Route: 041
     Dates: start: 20200413, end: 20200413
  7. DOXORUBICIN HYDROCHLORIDE LIPOSOME [Suspect]
     Active Substance: DOXORUBICIN HYDROCHLORIDE
     Indication: PLASMA CELL MYELOMA
  8. VINDESINE SULFATE [Suspect]
     Active Substance: VINDESINE SULFATE
     Indication: PLASMA CELL MYELOMA
  9. ENDOXAN [Suspect]
     Active Substance: CYCLOPHOSPHAMIDE
     Indication: EWING^S SARCOMA
     Dosage: VAC CHEMOTHERAPY, ENDOXAN 1 GRAM+ GS 500 ML, DAY 1
     Route: 041
     Dates: start: 20200413, end: 20200413
  10. 5% GLUCOSE  INJECTION [Suspect]
     Active Substance: DEXTROSE
     Dosage: VAC CHEMOTHERAPY, DOXORUBICIN HYDROCHLORIDE LIPOSOMAL 40 MG+ GS 500 ML, DAY 1 TO DAY 2
     Route: 041
     Dates: start: 20200413, end: 20200414

REACTIONS (1)
  - Bone marrow failure [Recovering/Resolving]

NARRATIVE: CASE EVENT DATE: 20200423
